FAERS Safety Report 10483078 (Version 1)
Quarter: 2014Q3

REPORT INFORMATION
  Report Type: Report from Study
  Country: FR (occurrence: FR)
  Receive Date: 20140930
  Receipt Date: 20140930
  Transmission Date: 20150326
  Serious: Yes (Other)
  Sender: FDA-Public Use
  Company Number: FR-AMGEN-FRASP2014074096

PATIENT
  Sex: Female
  Weight: 90 kg

DRUGS (1)
  1. PROLIA [Suspect]
     Active Substance: DENOSUMAB
     Indication: OSTEOPOROSIS POSTMENOPAUSAL
     Route: 065

REACTIONS (11)
  - Diabetes mellitus [Unknown]
  - Renal failure chronic [Unknown]
  - Myocardial infarction [Unknown]
  - Back pain [Unknown]
  - Hypertension [Unknown]
  - Mobility decreased [Unknown]
  - Depression [Unknown]
  - Asthenia [Unknown]
  - Activities of daily living impaired [Unknown]
  - Body height decreased [Unknown]
  - Liver disorder [Unknown]
